FAERS Safety Report 10177163 (Version 1)
Quarter: 2014Q2

REPORT INFORMATION
  Report Type: Report from Study
  Country: FR (occurrence: FR)
  Receive Date: 20140516
  Receipt Date: 20140516
  Transmission Date: 20141212
  Serious: Yes (Death, Other)
  Sender: FDA-Public Use
  Company Number: FR-GLAXOSMITHKLINE-B0994436A

PATIENT
  Sex: Male
  Weight: 75 kg

DRUGS (11)
  1. OFATUMUMAB [Suspect]
     Indication: CHRONIC LYMPHOCYTIC LEUKAEMIA
     Dosage: 300MG CYCLIC
     Route: 042
     Dates: start: 20140207, end: 20140207
  2. IDELALISIB [Suspect]
     Indication: CHRONIC LYMPHOCYTIC LEUKAEMIA
     Dosage: 150MG TWICE PER DAY
     Route: 048
     Dates: start: 20140207, end: 20140226
  3. IMMUNOGLOBULIN [Suspect]
  4. BACTRIM [Concomitant]
  5. ALLOPURINOL [Concomitant]
  6. VALACYCLOVIR [Concomitant]
  7. INSULIN [Concomitant]
  8. FOLIC ACID [Concomitant]
  9. CELIPROLOL [Concomitant]
  10. FENOFIBRATE [Concomitant]
  11. FILGRASTIM [Concomitant]

REACTIONS (1)
  - Septic shock [Fatal]
